FAERS Safety Report 24086400 (Version 1)
Quarter: 2024Q3

REPORT INFORMATION
  Report Type: Spontaneous
  Country: GR (occurrence: GR)
  Receive Date: 20240712
  Receipt Date: 20240712
  Transmission Date: 20241016
  Serious: No
  Sender: BLUEPRINT MEDICINES
  Company Number: GR-Blueprint Medicines Corporation-SP-GR-2024-001369

PATIENT
  Age: 58 Year
  Sex: Male

DRUGS (1)
  1. AVAPRITINIB [Suspect]
     Active Substance: AVAPRITINIB
     Indication: Gastrointestinal stromal tumour
     Route: 065
     Dates: start: 202204, end: 202307

REACTIONS (7)
  - Periorbital oedema [Unknown]
  - Anaemia [Unknown]
  - Blood creatinine increased [Unknown]
  - Aphasia [Unknown]
  - Dysphagia [Unknown]
  - Toxicity to various agents [Not Recovered/Not Resolved]
  - Drug effect less than expected [Unknown]

NARRATIVE: CASE EVENT DATE: 20220701
